FAERS Safety Report 20048634 (Version 6)
Quarter: 2021Q4

REPORT INFORMATION
  Report Type: Spontaneous
  Country: US (occurrence: US)
  Receive Date: 20211109
  Receipt Date: 20211202
  Transmission Date: 20220304
  Serious: No
  Sender: FDA-Public Use
  Company Number: US-AMGEN-USASP2021173749

PATIENT
  Age: 32 Year
  Sex: Female
  Weight: 121 kg

DRUGS (7)
  1. NEULASTA [Suspect]
     Active Substance: PEGFILGRASTIM
     Indication: Medullary carcinoma of breast
     Dosage: UNK
     Route: 065
  2. NEULASTA [Suspect]
     Active Substance: PEGFILGRASTIM
     Indication: Prophylaxis
  3. ADRIAMYCIN [Concomitant]
     Active Substance: DOXORUBICIN HYDROCHLORIDE
     Indication: Medullary carcinoma of breast
     Dosage: UNK
  4. ADRIAMYCIN [Concomitant]
     Active Substance: DOXORUBICIN HYDROCHLORIDE
     Indication: Triple negative breast cancer
  5. CYCLOPHOSPHAMIDE [Concomitant]
     Active Substance: CYCLOPHOSPHAMIDE
     Indication: Medullary carcinoma of breast
     Dosage: UNK
  6. CYCLOPHOSPHAMIDE [Concomitant]
     Active Substance: CYCLOPHOSPHAMIDE
     Indication: Triple negative breast cancer
  7. PEMBROLIZUMAB [Concomitant]
     Active Substance: PEMBROLIZUMAB
     Indication: Triple negative breast cancer
     Dosage: UNK

REACTIONS (1)
  - Device malfunction [Unknown]

NARRATIVE: CASE EVENT DATE: 20211023
